FAERS Safety Report 10168945 (Version 1)
Quarter: 2014Q2

REPORT INFORMATION
  Report Type: Spontaneous
  Country: US (occurrence: None)
  Receive Date: 20140512
  Receipt Date: 20140512
  Transmission Date: 20141212
  Serious: Yes (Hospitalization)
  Sender: FDA-Public Use
  Company Number: None

PATIENT
  Age: 55 Year
  Sex: Female
  Weight: 62 kg

DRUGS (3)
  1. TAXOL [Suspect]
     Dosage: 179MG, ONCE W OTHER WEEK, INTRAVENOUS?
     Route: 042
  2. 5FU [Suspect]
     Route: 042
  3. HYDROXUREA [Concomitant]

REACTIONS (1)
  - Neutropenia [None]
